FAERS Safety Report 20214496 (Version 1)
Quarter: 2021Q4

REPORT INFORMATION
  Report Type: Spontaneous
  Country: US (occurrence: US)
  Receive Date: 20211221
  Receipt Date: 20211221
  Transmission Date: 20220303
  Serious: No
  Sender: FDA-Public Use
  Company Number: US-ORGANON-O2111USA002593

PATIENT
  Age: 69 Year
  Sex: Male

DRUGS (17)
  1. SINGULAIR [Suspect]
     Active Substance: MONTELUKAST SODIUM
     Indication: Systemic mastocytosis
     Dosage: 10 MILLIGRAM, QD
     Route: 048
  2. SINGULAIR [Suspect]
     Active Substance: MONTELUKAST SODIUM
     Indication: Prophylaxis
     Dosage: 20 MILLIGRAM, BID
     Route: 048
  3. SINGULAIR [Suspect]
     Active Substance: MONTELUKAST SODIUM
     Dosage: 10 MILLIGRAM, QD
     Route: 048
  4. CETIRIZINE [Concomitant]
     Active Substance: CETIRIZINE HYDROCHLORIDE
     Indication: Systemic mastocytosis
     Dosage: 20 MILLIGRAM, BID
  5. CETIRIZINE [Concomitant]
     Active Substance: CETIRIZINE HYDROCHLORIDE
     Indication: Prophylaxis
  6. RANITIDINE [Concomitant]
     Active Substance: RANITIDINE
     Indication: Systemic mastocytosis
     Dosage: 150 MILLIGRAM, BID
  7. CROMOLYN SODIUM [Concomitant]
     Active Substance: CROMOLYN SODIUM
     Indication: Prophylaxis
     Dosage: 200 MILLIGRAM, QID
     Route: 048
  8. ASPIRIN [Concomitant]
     Active Substance: ASPIRIN
     Indication: Systemic mastocytosis
     Dosage: 81 MILLIGRAM, QD
  9. ASPIRIN [Concomitant]
     Active Substance: ASPIRIN
     Indication: Prophylaxis
     Dosage: 50 MILLIGRAM, TID
  10. KETOTIFEN [Concomitant]
     Active Substance: KETOTIFEN
     Dosage: 10 MILLIGRAM, QD
  11. DIPHENHYDRAMINE [Concomitant]
     Active Substance: DIPHENHYDRAMINE
     Dosage: 50 MILLIGRAM, Q4H
  12. FAMOTIDINE [Concomitant]
     Active Substance: FAMOTIDINE
     Dosage: 40 MILLIGRAM, BID
  13. METHYLPREDNISOLONE [Concomitant]
     Active Substance: METHYLPREDNISOLONE
     Dosage: 50 MILLIGRAM
  14. OMALIZUMAB [Concomitant]
     Active Substance: OMALIZUMAB
     Dosage: 300 MILLIGRAM
  15. AVAPRITINIB [Concomitant]
     Active Substance: AVAPRITINIB
     Dosage: ALTERNATING DAILY DOSING
  16. FEXOFENADINE [Concomitant]
     Active Substance: FEXOFENADINE HYDROCHLORIDE
     Dosage: 360 MILLIGRAM, QD
  17. MIDOSTAURIN [Concomitant]
     Active Substance: MIDOSTAURIN
     Dosage: 50 MILLIGRAM, BID

REACTIONS (1)
  - Product use in unapproved indication [Unknown]
